FAERS Safety Report 5510331-X (Version None)
Quarter: 2007Q4

REPORT INFORMATION
  Report Type: 
  Country: None (occurrence: None)
  Receive Date: 20071108
  Receipt Date: 20071029
  Transmission Date: 20080405
  Serious: Yes (Hospitalization)
  Sender: FDA-Public Use
  Company Number: FI-PFIZER INC-2007090977

PATIENT
  Sex: Female

DRUGS (1)
  1. DALACIN [Suspect]
     Route: 048
     Dates: start: 20060101, end: 20060101

REACTIONS (5)
  - HEART RATE INCREASED [None]
  - MUSCLE SPASMS [None]
  - PARAESTHESIA [None]
  - SYNCOPE [None]
  - VOMITING [None]
